FAERS Safety Report 21779394 (Version 5)
Quarter: 2023Q1

REPORT INFORMATION
  Report Type: Report from Study
  Country: US (occurrence: US)
  Receive Date: 20221226
  Receipt Date: 20230108
  Transmission Date: 20230418
  Serious: Yes (Hospitalization, Other)
  Sender: FDA-Public Use
  Company Number: US-ABBVIE-4249612

PATIENT
  Sex: Female

DRUGS (1)
  1. VENCLEXTA [Suspect]
     Active Substance: VENETOCLAX
     Indication: Plasma cell myeloma
     Dosage: 4 TABLETS DAILY?FORM STRENGTH: 100 MG
     Route: 048

REACTIONS (6)
  - Depression [Unknown]
  - Off label use [Unknown]
  - Rectal prolapse [Unknown]
  - Mobility decreased [Unknown]
  - Mental disorder [Unknown]
  - Asthenia [Unknown]

NARRATIVE: CASE EVENT DATE: 20220101
